FAERS Safety Report 5360391-4 (Version None)
Quarter: 2007Q2

REPORT INFORMATION
  Report Type: 
  Country: None (occurrence: None)
  Receive Date: 20070614
  Receipt Date: 20070607
  Transmission Date: 20071010
  Serious: Yes (Hospitalization)
  Sender: FDA-Public Use
  Company Number: 2007-02747

PATIENT
  Age: 15 Year
  Sex: Female

DRUGS (1)
  1. CEFUROXIME SODIUM [Suspect]
     Indication: PREOPERATIVE CARE
     Dosage: X 4 DAYS, INTRAVENOUS
     Route: 042
     Dates: start: 20060101

REACTIONS (2)
  - GRANULOMA [None]
  - NEPHRITIS INTERSTITIAL [None]
